FAERS Safety Report 9585029 (Version 1)
Quarter: 2013Q4

REPORT INFORMATION
  Report Type: Spontaneous
  Country: US (occurrence: US)
  Receive Date: 20131002
  Receipt Date: 20131002
  Transmission Date: 20140711
  Serious: No
  Sender: FDA-Public Use
  Company Number: US-AMGEN-USASP2013057159

PATIENT
  Age: 58 Year
  Sex: Female
  Weight: 99.77 kg

DRUGS (10)
  1. ENBREL [Suspect]
     Indication: PRODUCT USED FOR UNKNOWN INDICATION
     Dosage: 50 MG, QWK
     Route: 058
     Dates: start: 201302
  2. METHOTREXATE [Concomitant]
     Dosage: 2.5 MG, UNK
  3. SYNTHROID [Concomitant]
     Dosage: 75 MUG, UNK
  4. METFORMIN [Concomitant]
     Dosage: 850 MG, UNK
  5. ACYCLOVIR                          /00587301/ [Concomitant]
     Dosage: 200 MG, UNK
  6. FOLIC ACID [Concomitant]
     Dosage: 1 MG, UNK
  7. IBUPROFEN [Concomitant]
     Dosage: 800 MG, QD
  8. PROZAC [Concomitant]
     Dosage: 20 MG, UNK
  9. MIRAPEX [Concomitant]
     Dosage: 1 MG, UNK
  10. ZETIA [Concomitant]
     Dosage: 10 MG, UNK

REACTIONS (1)
  - Drug ineffective [Unknown]
